FAERS Safety Report 17232247 (Version 1)
Quarter: 2020Q1

REPORT INFORMATION
  Report Type: Spontaneous
  Country: US (occurrence: US)
  Receive Date: 20200103
  Receipt Date: 20200103
  Transmission Date: 20200409
  Serious: Yes (Hospitalization, Other)
  Sender: FDA-Public Use
  Company Number: US-GLAXOSMITHKLINE-A0171774A

PATIENT
  Age: 34 Year
  Sex: Male
  Weight: 86.4 kg

DRUGS (4)
  1. IBUPROFEN. [Concomitant]
     Active Substance: IBUPROFEN
     Indication: HEADACHE
     Dosage: UNK
  2. IMITREX [Suspect]
     Active Substance: SUMATRIPTAN SUCCINATE
     Indication: HEADACHE
     Route: 058
  3. METHYLPREDNISOLONE. [Concomitant]
     Active Substance: METHYLPREDNISOLONE
     Indication: HEADACHE
  4. MEPERIDINE [Concomitant]
     Active Substance: MEPERIDINE
     Indication: HEADACHE

REACTIONS (11)
  - Thunderclap headache [Recovered/Resolved]
  - Reversible cerebral vasoconstriction syndrome [Recovered/Resolved]
  - Ischaemic stroke [Recovered/Resolved]
  - Ischaemia [Recovered/Resolved]
  - Blood pressure systolic increased [Recovered/Resolved]
  - Condition aggravated [Recovered/Resolved]
  - Cerebrovascular disorder [Recovered/Resolved]
  - Neurological symptom [Recovered/Resolved]
  - Headache [Recovered/Resolved]
  - Seizure [Recovered/Resolved]
  - Vasoconstriction [Recovered/Resolved]
